FAERS Safety Report 9303795 (Version 1)
Quarter: 2013Q2

REPORT INFORMATION
  Report Type: Spontaneous
  Country: CN (occurrence: CN)
  Receive Date: 20130522
  Receipt Date: 20130522
  Transmission Date: 20140414
  Serious: Yes (Other)
  Sender: FDA-Public Use
  Company Number: CN-ASTRAZENECA-2013SE35622

PATIENT
  Sex: Male
  Weight: 17 kg

DRUGS (8)
  1. BUDESONIDE [Suspect]
     Indication: BRONCHOSPASM
     Route: 055
     Dates: start: 20120214, end: 20120221
  2. TERBUTALINE SULFATE [Suspect]
     Indication: BRONCHOSPASM
     Route: 065
     Dates: start: 20120214, end: 20120221
  3. CEFUROXIME SODIUM [Suspect]
     Indication: INFECTION
     Route: 041
     Dates: start: 20120214, end: 20120221
  4. IPRATROPIUM BROMIDE [Suspect]
     Indication: SPUTUM ABNORMAL
     Route: 065
     Dates: start: 20120214, end: 20120221
  5. LANQIN [Concomitant]
     Indication: PYREXIA
     Route: 048
  6. LANQIN [Concomitant]
     Indication: DETOXIFICATION
     Route: 048
  7. AEROSOL INHALATION [Concomitant]
     Indication: BRONCHOSPASM
     Route: 055
  8. ENERGY MIXTURE [Concomitant]
     Indication: NUTRITIONAL SUPPLEMENTATION

REACTIONS (2)
  - Leukopenia [Recovering/Resolving]
  - Neutropenia [Recovering/Resolving]
